FAERS Safety Report 8966010 (Version 1)
Quarter: 2012Q4

REPORT INFORMATION
  Report Type: 
  Country: FR (occurrence: FR)
  Receive Date: 20121217
  Receipt Date: 20121217
  Transmission Date: 20130627
  Serious: Yes (Death)
  Sender: FDA-Public Use
  Company Number: FR-SANOFI-AVENTIS-2012SA089405

PATIENT
  Age: 73 Year
  Sex: Male

DRUGS (8)
  1. JEVTANA [Suspect]
     Indication: PROSTATIC CANCER
     Route: 042
     Dates: start: 20121024
  2. MOTILIUM [Concomitant]
  3. PRAVASTATINE [Concomitant]
  4. FLECAINE [Concomitant]
  5. APROVEL [Concomitant]
  6. ALLOPURINOL [Concomitant]
  7. INEXIUM [Concomitant]
  8. PREDNISONE [Concomitant]

REACTIONS (5)
  - Haemoglobin decreased [Fatal]
  - White blood cell count decreased [Fatal]
  - Neutrophil count decreased [Fatal]
  - Platelet count decreased [Fatal]
  - Bone marrow failure [Fatal]
